FAERS Safety Report 10309292 (Version 1)
Quarter: 2014Q3

REPORT INFORMATION
  Report Type: Spontaneous
  Country: US (occurrence: None)
  Receive Date: 20140714
  Receipt Date: 20140714
  Transmission Date: 20150326
  Serious: Yes (Hospitalization, Other)
  Sender: FDA-Public Use
  Company Number: 2010S1004592

PATIENT
  Age: 54 Year
  Sex: Female
  Weight: 127.01 kg

DRUGS (10)
  1. PHOSPHO-SODA [Suspect]
     Active Substance: SODIUM PHOSPHATE, DIBASIC\SODIUM PHOSPHATE, MONOBASIC
     Indication: OBESITY SURGERY
     Route: 048
     Dates: start: 20070117, end: 20070117
  2. HYDROCHLOROTHIAZIDE (HYDROCHLOROTHIAZIDE) [Concomitant]
     Active Substance: HYDROCHLOROTHIAZIDE
  3. CRESTOR [Concomitant]
     Active Substance: ROSUVASTATIN CALCIUM
  4. DILTIAZEM (DILTIAZEM) [Concomitant]
  5. KLONOPIN (CLONAZEPAM) [Concomitant]
  6. XENICAL (ORLISTAT) [Concomitant]
  7. TEMAZEPAM (TEMAZEPAM) [Concomitant]
     Active Substance: TEMAZEPAM
  8. METHOTRIMEPRAZINE (LEVOME PROMAZINE) [Concomitant]
  9. METFORMIN [Concomitant]
     Active Substance: METFORMIN HYDROCHLORIDE
  10. EFFEXOR (VENLAFAXINE HYDROCHLORIDE) [Concomitant]

REACTIONS (16)
  - Hypotension [None]
  - Renal tubular necrosis [None]
  - Blood uric acid increased [None]
  - Renal failure acute [None]
  - Dehydration [None]
  - Postoperative renal failure [None]
  - Anaemia [None]
  - Hepatic steatosis [None]
  - Blood chloride increased [None]
  - Blood calcium decreased [None]
  - Labile hypertension [None]
  - Fatigue [None]
  - Renal failure chronic [None]
  - Portal fibrosis [None]
  - Hypokalaemia [None]
  - Hyperparathyroidism [None]

NARRATIVE: CASE EVENT DATE: 20070119
